FAERS Safety Report 5938546-7 (Version None)
Quarter: 2008Q4

REPORT INFORMATION
  Report Type: 
  Country: None (occurrence: None)
  Receive Date: 20081103
  Receipt Date: 20081024
  Transmission Date: 20090506
  Serious: Yes (Other)
  Sender: FDA-Public Use
  Company Number: PHHY2008GB24680

PATIENT
  Sex: Male
  Weight: 71 kg

DRUGS (3)
  1. TRILEPTAL [Suspect]
     Indication: CONVULSION
     Dosage: 450 MG, BID
     Dates: start: 20080101
  2. CLOBAZAM [Concomitant]
     Indication: EPILEPSY
     Dosage: 10MG MANE, 20MG NOCTE
     Route: 048
     Dates: start: 20071201
  3. LEVETIRACETAM [Concomitant]
     Dosage: 450 MG, BID
     Route: 048

REACTIONS (2)
  - DRUG INEFFECTIVE [None]
  - EJACULATION FAILURE [None]
